FAERS Safety Report 7277384-2 (Version None)
Quarter: 2011Q1

REPORT INFORMATION
  Report Type: 
  Country: None (occurrence: None)
  Receive Date: 20110207
  Receipt Date: 20110131
  Transmission Date: 20110831
  Serious: Yes (Hospitalization, Other)
  Sender: FDA-Public Use
  Company Number: BR-US-EMD SERONO, INC.-7039299

PATIENT
  Sex: Female

DRUGS (4)
  1. PARACETAMOL [Concomitant]
  2. REBIF [Suspect]
     Indication: RELAPSING-REMITTING MULTIPLE SCLEROSIS
     Dates: start: 20100702
  3. METHOTREXATE [Suspect]
     Dates: start: 20101204
  4. FLUOXETINE [Concomitant]

REACTIONS (2)
  - HEPATITIS [None]
  - MULTIPLE SCLEROSIS RELAPSE [None]
